FAERS Safety Report 12703378 (Version 17)
Quarter: 2022Q1

REPORT INFORMATION
  Report Type: Report from Study
  Country: JP (occurrence: JP)
  Receive Date: 20160831
  Receipt Date: 20220311
  Transmission Date: 20220423
  Serious: Yes (Hospitalization, Other)
  Sender: FDA-Public Use
  Company Number: JP-JNJFOC-20160824209

PATIENT
  Age: 62 Year
  Sex: Male

DRUGS (21)
  1. INTELENCE [Suspect]
     Active Substance: ETRAVIRINE
     Indication: HIV infection
     Dosage: ETRAVIRINE:100MG
     Route: 048
     Dates: start: 20140613
  2. DARUNAVIR ETHANOLATE [Suspect]
     Active Substance: DARUNAVIR ETHANOLATE
     Indication: HIV infection
     Route: 048
     Dates: start: 20140613
  3. NORVIR [Suspect]
     Active Substance: RITONAVIR
     Indication: HIV infection
     Route: 048
     Dates: start: 20140613
  4. TIVICAY [Suspect]
     Active Substance: DOLUTEGRAVIR SODIUM
     Indication: HIV infection
     Route: 048
     Dates: start: 20140613
  5. TRUVADA [Suspect]
     Active Substance: EMTRICITABINE\TENOFOVIR DISOPROXIL FUMARATE
     Indication: HIV infection
     Route: 048
     Dates: start: 20050616, end: 20140612
  6. ISENTRESS [Suspect]
     Active Substance: RALTEGRAVIR POTASSIUM
     Indication: HIV infection
     Route: 048
     Dates: start: 20101215, end: 20140612
  7. AZITHROMYCIN DIHYDRATE [Concomitant]
     Active Substance: AZITHROMYCIN DIHYDRATE
     Indication: Prophylaxis
     Route: 048
     Dates: start: 20140613, end: 20160617
  8. DIFLUCAN [Concomitant]
     Active Substance: FLUCONAZOLE
     Indication: Prophylaxis
     Route: 048
     Dates: start: 20140401, end: 20150612
  9. URSO [Concomitant]
     Active Substance: URSODIOL
     Indication: Hepatitis C
     Route: 048
     Dates: start: 20140401, end: 20160629
  10. BENEFIX [Concomitant]
     Active Substance: COAGULATION FACTOR IX RECOMBINANT HUMAN\ISOPROPYL ALCOHOL
     Indication: Factor IX deficiency
     Dosage: 1 OR 2 TIMES PER WEEK
     Route: 013
     Dates: start: 20140401, end: 20190830
  11. LORMETAZEPAM [Concomitant]
     Active Substance: LORMETAZEPAM
     Indication: Insomnia
     Route: 048
     Dates: start: 20140613
  12. NAUZELIN [Concomitant]
     Active Substance: DOMPERIDONE
     Indication: Nausea
     Route: 048
     Dates: start: 20140617, end: 20160401
  13. HARVONI [Concomitant]
     Active Substance: LEDIPASVIR\SOFOSBUVIR
     Indication: Hepatitis C
     Route: 048
     Dates: start: 20151016, end: 20160106
  14. BIOFERMIN                          /01617201/ [Concomitant]
     Indication: Constipation
     Route: 048
     Dates: start: 20170623, end: 20170821
  15. LEVOFLOXACIN HEMIHYDRATE [Concomitant]
     Active Substance: LEVOFLOXACIN
     Indication: Cataract
     Route: 047
     Dates: start: 20180714, end: 201809
  16. BROMFENAC SODIUM [Concomitant]
     Active Substance: BROMFENAC SODIUM
     Indication: Cataract
     Route: 047
     Dates: start: 20180716, end: 201809
  17. DEXAMETHASONE [Concomitant]
     Active Substance: DEXAMETHASONE
     Indication: Cataract
     Route: 047
     Dates: start: 20180716, end: 201808
  18. FLUOROMETHOLONE [Concomitant]
     Active Substance: FLUOROMETHOLONE
     Indication: Cataract
     Route: 047
     Dates: start: 20180716, end: 201809
  19. NU-LOTAN [Concomitant]
     Active Substance: LOSARTAN POTASSIUM
     Route: 048
     Dates: start: 20191111
  20. REFIXIA [Concomitant]
     Indication: Factor IX deficiency
     Route: 042
     Dates: start: 20190806
  21. DIFLUCAN [Concomitant]
     Active Substance: FLUCONAZOLE
     Indication: Prophylaxis
     Dates: start: 20140401, end: 20150612

REACTIONS (12)
  - Hyponatraemia [Not Recovered/Not Resolved]
  - Hepatitis C [Recovering/Resolving]
  - Lipodystrophy acquired [Unknown]
  - Renal impairment [Not Recovered/Not Resolved]
  - Cataract [Recovered/Resolved]
  - Cataract [Recovering/Resolving]
  - Nausea [Recovering/Resolving]
  - Constipation [Recovered/Resolved]
  - Intraocular lens implant [Not Recovered/Not Resolved]
  - Intraocular lens implant [Not Recovered/Not Resolved]
  - Lymphocyte count decreased [Recovering/Resolving]
  - Protein total increased [Not Recovered/Not Resolved]

NARRATIVE: CASE EVENT DATE: 20140617
